FAERS Safety Report 8439065-9 (Version None)
Quarter: 2012Q2

REPORT INFORMATION
  Report Type: 
  Country: None (occurrence: None)
  Receive Date: 20120615
  Receipt Date: 20120604
  Transmission Date: 20120825
  Serious: Yes (Hospitalization)
  Sender: FDA-Public Use
  Company Number: US-MYLANLABS-2012S1011563

PATIENT
  Age: 62 Year
  Sex: Male

DRUGS (17)
  1. INSULIN GLARGINE [Suspect]
     Indication: TYPE 2 DIABETES MELLITUS
     Dates: start: 20110811, end: 20111120
  2. INSULIN GLARGINE [Suspect]
     Dates: start: 20111121, end: 20120515
  3. PLACEBO [Suspect]
     Indication: TYPE 2 DIABETES MELLITUS
  4. LISINOPRIL [Suspect]
  5. ASPIRIN [Suspect]
  6. BLINDED STUDY MEDICATION [Suspect]
     Indication: TYPE 2 DIABETES MELLITUS
     Dates: start: 20101220, end: 20111114
  7. INSULIN GLARGINE [Suspect]
     Dates: start: 20120516
  8. INSULIN ASPART [Suspect]
     Dates: start: 20110311, end: 20110602
  9. FUROSEMIDE [Suspect]
  10. NIACIN [Concomitant]
  11. BLINDED STUDY MEDICATION [Suspect]
     Dates: start: 20111205
  12. INSULIN ASPART [Suspect]
     Dates: start: 20110603
  13. ISOSORBIDE MONONITRATE [Suspect]
  14. NIFEDIPINE [Suspect]
  15. SPIRONOLACTONE AND HYDROCHLOROTHIAZIDE [Suspect]
  16. INSULIN ASPART [Suspect]
     Indication: TYPE 2 DIABETES MELLITUS
     Dates: end: 20110310
  17. ATENOLOL [Suspect]

REACTIONS (2)
  - RENAL FAILURE ACUTE [None]
  - HYPOTENSION [None]
